FAERS Safety Report 5212841-1 (Version None)
Quarter: 2007Q1

REPORT INFORMATION
  Report Type: 
  Country: None (occurrence: None)
  Receive Date: 20070119
  Receipt Date: 20070110
  Transmission Date: 20070707
  Serious: Yes (Other)
  Sender: FDA-Public Use
  Company Number: US-JNJFOC-20061106550

PATIENT
  Sex: Male

DRUGS (2)
  1. LEVAQUIN [Suspect]
     Indication: PROPHYLAXIS
     Route: 048
  2. LEVAQUIN [Suspect]
     Indication: PROSTATITIS
     Route: 048

REACTIONS (6)
  - ARTHRALGIA [None]
  - DEPRESSION [None]
  - HEADACHE [None]
  - INTERVERTEBRAL DISC PROTRUSION [None]
  - MALAISE [None]
  - ROTATOR CUFF SYNDROME [None]
